FAERS Safety Report 16851120 (Version 1)
Quarter: 2019Q3

REPORT INFORMATION
  Report Type: Spontaneous
  Country: CA (occurrence: CA)
  Receive Date: 20190925
  Receipt Date: 20190925
  Transmission Date: 20191005
  Serious: Yes (Other)
  Sender: FDA-Public Use
  Company Number: CA-PFIZER INC-2019410415

PATIENT
  Sex: Female

DRUGS (10)
  1. CIPRO [Suspect]
     Active Substance: CIPROFLOXACIN HYDROCHLORIDE
     Indication: CROHN^S DISEASE
     Dosage: UNK
     Route: 065
  2. HUMIRA [Suspect]
     Active Substance: ADALIMUMAB
     Indication: CROHN^S DISEASE
     Dosage: UNK
     Route: 058
  3. VENLAFAXINE HYDROCHLORIDE. [Suspect]
     Active Substance: VENLAFAXINE HYDROCHLORIDE
     Dosage: 150 MG, 1X/DAY
     Route: 048
  4. ROBAXIN [Suspect]
     Active Substance: METHOCARBAMOL
     Dosage: 500 MG, UNK
     Route: 048
  5. AMITRIPTYLINE HYDROCHLORIDE. [Suspect]
     Active Substance: AMITRIPTYLINE HYDROCHLORIDE
     Dosage: 125 MG, 1X/DAY
     Route: 048
  6. FLAGYL [Suspect]
     Active Substance: METRONIDAZOLE\METRONIDAZOLE HYDROCHLORIDE
     Indication: CROHN^S DISEASE
     Dosage: UNK
     Route: 065
  7. PARIET [Suspect]
     Active Substance: RABEPRAZOLE SODIUM
     Dosage: 20 MG, UNK
     Route: 048
  8. PENTASA [Suspect]
     Active Substance: MESALAMINE
     Dosage: UNK, 3X/DAY
     Route: 065
  9. METHOTREXATE SODIUM. [Suspect]
     Active Substance: METHOTREXATE SODIUM
     Indication: CROHN^S DISEASE
     Dosage: 7.5 MG, WEEKLY
     Route: 048
  10. FOLIC ACID. [Suspect]
     Active Substance: FOLIC ACID
     Dosage: 5 MG, 1X/DAY
     Route: 065

REACTIONS (11)
  - Anal fissure haemorrhage [Unknown]
  - Drug ineffective [Unknown]
  - Off label use [Unknown]
  - Anal fistula [Unknown]
  - Cystitis [Unknown]
  - Product use in unapproved indication [Unknown]
  - Impaired quality of life [Unknown]
  - Haemorrhage [Unknown]
  - Fistula discharge [Unknown]
  - Impaired work ability [Unknown]
  - Pain [Unknown]
